FAERS Safety Report 22034817 (Version 16)
Quarter: 2025Q3

REPORT INFORMATION
  Report Type: Report from Study
  Country: CA (occurrence: CA)
  Receive Date: 20230224
  Receipt Date: 20250826
  Transmission Date: 20251020
  Serious: Yes (Other)
  Sender: TAKEDA
  Company Number: CA-TAKEDA-2021TUS038233

PATIENT
  Sex: Female
  Weight: 54 kg

DRUGS (12)
  1. HUMAN IMMUNOGLOBULIN G [Suspect]
     Active Substance: HUMAN IMMUNOGLOBULIN G
     Indication: Primary immunodeficiency syndrome
     Dosage: 10 GRAM, 1/WEEK
     Dates: start: 20180611
  2. HUMAN IMMUNOGLOBULIN G [Suspect]
     Active Substance: HUMAN IMMUNOGLOBULIN G
     Indication: Pneumonia bacterial
     Dosage: UNK UNK, 1/WEEK
  3. HUMAN IMMUNOGLOBULIN G [Suspect]
     Active Substance: HUMAN IMMUNOGLOBULIN G
     Indication: Bronchiectasis
     Dosage: 10 GRAM, 1/WEEK
  4. HUMAN IMMUNOGLOBULIN G [Suspect]
     Active Substance: HUMAN IMMUNOGLOBULIN G
     Indication: IgG deficiency
     Dosage: 10 GRAM, 1/WEEK
  5. HUMAN IMMUNOGLOBULIN G [Suspect]
     Active Substance: HUMAN IMMUNOGLOBULIN G
     Dosage: 10 GRAM, 1/WEEK
  6. CHLORHEXIDINE [Suspect]
     Active Substance: CHLORHEXIDINE
     Indication: Product used for unknown indication
  7. HIZENTRA [Concomitant]
     Active Substance: HUMAN IMMUNOGLOBULIN G
  8. RESTASIS [Concomitant]
     Active Substance: CYCLOSPORINE
  9. Ocunox [Concomitant]
  10. PATANOL [Concomitant]
     Active Substance: OLOPATADINE HYDROCHLORIDE
  11. Hylo [Concomitant]
  12. PILOCARPINE [Concomitant]
     Active Substance: PILOCARPINE

REACTIONS (39)
  - IgG deficiency [Unknown]
  - Bronchiectasis [Unknown]
  - Mycobacterium avium complex infection [Unknown]
  - Lymphoproliferative disorder [Unknown]
  - Umbilical hernia [Unknown]
  - Spinal stenosis [Unknown]
  - Lower respiratory tract infection [Unknown]
  - Cataract [Not Recovered/Not Resolved]
  - Haematuria [Unknown]
  - Drug hypersensitivity [Unknown]
  - Nasal crusting [Unknown]
  - Nystagmus [Unknown]
  - Rash macular [Not Recovered/Not Resolved]
  - Infusion related reaction [Unknown]
  - Arthritis [Not Recovered/Not Resolved]
  - Lung disorder [Unknown]
  - Lumbar spinal stenosis [Not Recovered/Not Resolved]
  - Weight decreased [Unknown]
  - Cholelithiasis [Unknown]
  - COVID-19 [Unknown]
  - Nervous system disorder [Unknown]
  - Wrong technique in product usage process [Unknown]
  - Product preparation issue [Unknown]
  - Sinusitis [Unknown]
  - Injection site rash [Unknown]
  - Oxygen saturation decreased [Unknown]
  - Night sweats [Unknown]
  - Muscle spasms [Not Recovered/Not Resolved]
  - Pain in extremity [Not Recovered/Not Resolved]
  - Rash [Unknown]
  - Malaise [Not Recovered/Not Resolved]
  - Pain [Unknown]
  - Infusion site swelling [Unknown]
  - Infusion site erythema [Not Recovered/Not Resolved]
  - Tachycardia [Unknown]
  - Headache [Unknown]
  - Product storage error [Unknown]
  - Lacrimation increased [Unknown]
  - Infusion site pruritus [Unknown]

NARRATIVE: CASE EVENT DATE: 20210101
